FAERS Safety Report 9018643 (Version 2)
Quarter: 2013Q1

REPORT INFORMATION
  Report Type: Spontaneous
  Country: JP (occurrence: JP)
  Receive Date: 20130118
  Receipt Date: 20130205
  Transmission Date: 20140127
  Serious: Yes (Other)
  Sender: FDA-Public Use
  Company Number: JP-PFIZER INC-2013020489

PATIENT
  Age: 4 Decade
  Sex: Female

DRUGS (1)
  1. LYRICA [Suspect]
     Dosage: 75 MG, 2X/DAY, AFTER BREAKFAST AND DINNER
     Route: 048
     Dates: start: 20110428

REACTIONS (3)
  - Road traffic accident [Unknown]
  - Somnolence [Unknown]
  - Feeling abnormal [Unknown]
